FAERS Safety Report 6305987-8 (Version None)
Quarter: 2009Q3

REPORT INFORMATION
  Report Type: 
  Country: None (occurrence: None)
  Receive Date: 20090812
  Receipt Date: 20090810
  Transmission Date: 20100115
  Serious: Yes (Hospitalization, Other)
  Sender: FDA-Public Use
  Company Number: PL-ROXANE LABORATORIES, INC.-2009-RO-00801RO

PATIENT
  Age: 18 Year
  Sex: Female

DRUGS (3)
  1. TOPIRAMATE [Suspect]
     Indication: EPILEPSY
     Dosage: 400 MG
  2. TOPIRAMATE [Suspect]
  3. BICARBONATE [Concomitant]
     Indication: METABOLIC ACIDOSIS
     Dosage: 80 MEQ

REACTIONS (5)
  - INTENTIONAL OVERDOSE [None]
  - METABOLIC ACIDOSIS [None]
  - PUPILLARY LIGHT REFLEX TESTS ABNORMAL [None]
  - SOMNOLENCE [None]
  - VERTIGO [None]
